FAERS Safety Report 4589169-6 (Version None)
Quarter: 2005Q1

REPORT INFORMATION
  Report Type: 
  Country: None (occurrence: None)
  Receive Date: 20050215
  Receipt Date: 20050215
  Transmission Date: 20050727
  Serious: Yes (Other)
  Sender: FDA-Public Use
  Company Number: None

PATIENT
  Sex: Female
  Weight: 117.9352 kg

DRUGS (1)
  1. DEPO-PROVERA [Suspect]
     Indication: CONTRACEPTION
     Dosage: EVERY 3 MONTH
     Dates: start: 19941127, end: 20050213

REACTIONS (6)
  - BACK PAIN [None]
  - FATIGUE [None]
  - FIBROMYALGIA [None]
  - LOSS OF LIBIDO [None]
  - PAIN IN EXTREMITY [None]
  - PAIN IN JAW [None]
